FAERS Safety Report 22288329 (Version 1)
Quarter: 2023Q2

REPORT INFORMATION
  Report Type: Spontaneous
  Country: US (occurrence: US)
  Receive Date: 20230505
  Receipt Date: 20230505
  Transmission Date: 20230722
  Serious: Yes (Hospitalization)
  Sender: FDA-Public Use
  Company Number: US-SA-SAC20230505000285

PATIENT
  Age: 11 Month
  Sex: Male

DRUGS (2)
  1. ALPROLIX [Suspect]
     Active Substance: EFTRENONACOG ALFA
     Indication: Factor IX deficiency
     Dosage: 1000 U, TIW (INFUSE 1000 UNITS (900-1100) BY INTRAVENOUS ROUTE EVERY MONDAY, WEDNESDAY AND FRIDAY)
     Route: 042
     Dates: start: 202212
  2. ALPROLIX [Suspect]
     Active Substance: EFTRENONACOG ALFA
     Indication: Factor IX deficiency
     Dosage: 1000 U, TIW (INFUSE 1000 UNITS (900-1100) BY INTRAVENOUS ROUTE EVERY MONDAY, WEDNESDAY AND FRIDAY)
     Route: 042
     Dates: start: 202212

REACTIONS (1)
  - Staphylococcal infection [Unknown]

NARRATIVE: CASE EVENT DATE: 20230401
